FAERS Safety Report 22606587 (Version 1)
Quarter: 2023Q2

REPORT INFORMATION
  Report Type: Spontaneous
  Country: US (occurrence: US)
  Receive Date: 20230615
  Receipt Date: 20230615
  Transmission Date: 20230722
  Serious: No
  Sender: FDA-Public Use
  Company Number: US-JNJFOC-20230615444

PATIENT
  Age: 7 Decade
  Sex: Female

DRUGS (1)
  1. TYLENOL 8 HR ARTHRITIS PAIN [Suspect]
     Active Substance: ACETAMINOPHEN
     Indication: Arthritis
     Dosage: STARTED 6 OR 7 YEARS AGO,  TAKE 1 EVERY MORNING AND 1 AT NIGHT , SOMETIMES TAKE 1 1/2 CAPLETS
     Route: 065

REACTIONS (1)
  - Off label use [Unknown]
